FAERS Safety Report 12466246 (Version 1)
Quarter: 2016Q2

REPORT INFORMATION
  Report Type: Spontaneous
  Country: AU (occurrence: AU)
  Receive Date: 20160614
  Receipt Date: 20160614
  Transmission Date: 20160815
  Serious: Yes (Hospitalization, Other)
  Sender: FDA-Public Use
  Company Number: AU-BRISTOL-MYERS SQUIBB COMPANY-BMS-2016-045575

PATIENT
  Age: 42 Year
  Sex: Male

DRUGS (2)
  1. ARIPIPRAZOLE. [Suspect]
     Active Substance: ARIPIPRAZOLE
     Indication: PRODUCT USED FOR UNKNOWN INDICATION
     Dosage: UNK
     Route: 065
  2. CLOZARIL [Suspect]
     Active Substance: CLOZAPINE
     Indication: PRODUCT USED FOR UNKNOWN INDICATION
     Dosage: 200 MG, QD
     Route: 048
     Dates: start: 20060206

REACTIONS (19)
  - Blood creatine phosphokinase increased [Unknown]
  - Blood alkaline phosphatase increased [Unknown]
  - Anion gap increased [Recovered/Resolved]
  - Blood triglycerides increased [Unknown]
  - Blood cholesterol increased [Unknown]
  - Electrocardiogram abnormal [Unknown]
  - Troponin increased [Unknown]
  - Blood iron increased [Recovered/Resolved]
  - Gastrooesophageal reflux disease [Unknown]
  - Dyspnoea [Unknown]
  - C-reactive protein increased [Unknown]
  - Chronic obstructive pulmonary disease [Unknown]
  - QRS axis abnormal [Unknown]
  - Wheezing [Unknown]
  - Haemolysis [Recovered/Resolved]
  - Blood urea decreased [Recovered/Resolved]
  - Blood lactate dehydrogenase increased [Unknown]
  - Myocardial ischaemia [Unknown]
  - Blood albumin increased [Recovered/Resolved]

NARRATIVE: CASE EVENT DATE: 20140318
